FAERS Safety Report 22788028 (Version 4)
Quarter: 2023Q4

REPORT INFORMATION
  Report Type: Report from Study
  Country: US (occurrence: US)
  Receive Date: 20230804
  Receipt Date: 20231110
  Transmission Date: 20240110
  Serious: Yes (Other)
  Sender: FDA-Public Use
  Company Number: US-002147023-NVSC2023US168844

PATIENT
  Sex: Female

DRUGS (1)
  1. ENTRESTO [Suspect]
     Active Substance: SACUBITRIL\VALSARTAN
     Indication: Cardiac failure
     Dosage: 1 DOSAGE FORM, BID
     Route: 048
     Dates: start: 202305

REACTIONS (8)
  - Ejection fraction decreased [Unknown]
  - Coronary artery occlusion [Unknown]
  - Incision site pain [Unknown]
  - Poor quality sleep [Unknown]
  - Fatigue [Unknown]
  - Hypotension [Recovering/Resolving]
  - Drug ineffective [Unknown]
  - Product dose omission issue [Unknown]
